FAERS Safety Report 9663063 (Version 2)
Quarter: 2013Q4

REPORT INFORMATION
  Report Type: Spontaneous
  Country: GR (occurrence: GR)
  Receive Date: 20131031
  Receipt Date: 20131031
  Transmission Date: 20140711
  Serious: Yes (Death)
  Sender: FDA-Public Use
  Company Number: GR-009507513-1208GRC009528

PATIENT
  Sex: Female

DRUGS (1)
  1. VORINOSTAT-MYCOSIS FUNGOIDES [Suspect]
     Route: 048

REACTIONS (1)
  - Death [Fatal]
